FAERS Safety Report 5699314-7 (Version None)
Quarter: 2008Q2

REPORT INFORMATION
  Report Type: 
  Country: None (occurrence: None)
  Receive Date: 20080404
  Receipt Date: 20080401
  Transmission Date: 20081010
  Serious: Yes (Hospitalization)
  Sender: FDA-Public Use
  Company Number: TPA2007A02339

PATIENT
  Age: 70 Year
  Sex: Female
  Weight: 65.7716 kg

DRUGS (7)
  1. ACTOS [Suspect]
     Indication: TYPE 2 DIABETES MELLITUS
     Dosage: 15 MG, QD, PER ORAL, 30 MG, QD, PER ORAL
     Route: 048
     Dates: end: 20070501
  2. ACTOS [Suspect]
     Indication: TYPE 2 DIABETES MELLITUS
     Dosage: 15 MG, QD, PER ORAL, 30 MG, QD, PER ORAL
     Route: 048
     Dates: start: 20070501
  3. LANTUS [Concomitant]
  4. METHOTREXATE (METHOTREXATE) (TABLETS) [Concomitant]
  5. INSULIN (INSULIN) (INJECTION) [Concomitant]
  6. ASPIRIN [Concomitant]
  7. LIPITOR [Concomitant]

REACTIONS (2)
  - CEREBROVASCULAR ACCIDENT [None]
  - WEIGHT INCREASED [None]
